FAERS Safety Report 5113781-9 (Version None)
Quarter: 2006Q3

REPORT INFORMATION
  Report Type: 
  Country: None (occurrence: None)
  Receive Date: 20060925
  Receipt Date: 20060919
  Transmission Date: 20061208
  Serious: Yes (Other)
  Sender: FDA-Public Use
  Company Number: NL-AVENTIS-200619752GDDC

PATIENT
  Age: 56 Year
  Sex: Female

DRUGS (8)
  1. INSULIN GLARGINE [Suspect]
  2. INSULIN LISPRO [Suspect]
  3. NITROFURANTOINE [Suspect]
     Indication: CYSTITIS
     Dates: start: 20060806, end: 20060811
  4. ASPIRIN [Concomitant]
  5. PANTOPRAZOL [Concomitant]
  6. CANDESARTAN [Concomitant]
  7. FORMOTEROL/BUDESONIDE [Concomitant]
  8. ROSUVASTATIN [Concomitant]

REACTIONS (1)
  - BLOOD GLUCOSE INCREASED [None]
